FAERS Safety Report 8484394-6 (Version None)
Quarter: 2012Q3

REPORT INFORMATION
  Report Type: 
  Country: None (occurrence: None)
  Receive Date: 20120703
  Receipt Date: 20120621
  Transmission Date: 20120928
  Serious: Yes (Other)
  Sender: FDA-Public Use
  Company Number: US-COVIDIEN/TYCO HEALTHCARE/MALLINCKRODT-T201202614

PATIENT
  Age: 40 Week
  Weight: 2.7 kg

DRUGS (1)
  1. FENTANYL CITRATE [Suspect]
     Indication: THORACIC CAVITY DRAINAGE
     Dosage: 3.7 UG/KG, SINGLE
     Route: 040

REACTIONS (1)
  - MUSCLE RIGIDITY [None]
